FAERS Safety Report 20364522 (Version 1)
Quarter: 2022Q1

REPORT INFORMATION
  Report Type: Other
  Country: CN (occurrence: None)
  Receive Date: 20220122
  Receipt Date: 20220122
  Transmission Date: 20220423
  Serious: Yes (Hospitalization)
  Sender: FDA-Public Use
  Company Number: CN-Square-000040

PATIENT
  Age: 32 Year
  Sex: Female

DRUGS (9)
  1. ACYCLOVIR [Suspect]
     Active Substance: ACYCLOVIR
     Indication: Genital herpes simplex
     Dosage: 5 MG/KG EVERY 8 HOURS
     Route: 042
  2. VALACYCLOVIR [Suspect]
     Active Substance: VALACYCLOVIR HYDROCHLORIDE
     Indication: Genital herpes simplex
     Dosage: 1 G DAILY
     Route: 048
  3. PREDNISONE [Concomitant]
     Active Substance: PREDNISONE
     Indication: Vulvitis
     Route: 048
  4. CLINDAMYCIN [Concomitant]
     Active Substance: CLINDAMYCIN
     Indication: Vulvitis
     Route: 042
  5. AMPICILLIN SODIUM\SULBACTAM SODIUM [Concomitant]
     Active Substance: AMPICILLIN SODIUM\SULBACTAM SODIUM
     Indication: Vulvitis
  6. FLUCONAZOLE [Concomitant]
     Active Substance: FLUCONAZOLE
     Indication: Antifungal prophylaxis
  7. IMIQUIMOD [Concomitant]
     Active Substance: IMIQUIMOD
     Indication: Genital herpes simplex
     Dosage: 5% CREAM THREE TIMES A WEEK
     Route: 061
  8. ACYCLOVIR [Suspect]
     Active Substance: ACYCLOVIR
     Indication: Genital herpes simplex
     Dosage: 400 MG THREE TIMES DAILY FOR 10 DAYS
     Route: 048
  9. VALACYCLOVIR [Suspect]
     Active Substance: VALACYCLOVIR HYDROCHLORIDE
     Indication: Genital herpes simplex
     Dosage: 1 G TWICE DAILY FOR 10 DAYS
     Route: 048

REACTIONS (2)
  - Drug resistance [Unknown]
  - Treatment failure [Unknown]
